FAERS Safety Report 8816497 (Version 1)
Quarter: 2012Q4

REPORT INFORMATION
  Report Type: Spontaneous
  Country: DK (occurrence: None)
  Receive Date: 20120927
  Receipt Date: 20120927
  Transmission Date: 20130627
  Serious: Yes (Other)
  Sender: FDA-Public Use
  Company Number: 2012MA011574

PATIENT
  Sex: Female

DRUGS (2)
  1. NIFEDIPINE [Suspect]
     Indication: DRUG USE FOR UNKNOWN INDICATION
     Dosage: ; UNK; PO
     Route: 048
  2. FOLIC ACID [Concomitant]

REACTIONS (6)
  - Pre-eclampsia [None]
  - Oligohydramnios [None]
  - Caesarean section [None]
  - Foetal growth restriction [None]
  - Respiratory distress [None]
  - Exposure during pregnancy [None]
